FAERS Safety Report 4983814-9 (Version None)
Quarter: 2006Q1

REPORT INFORMATION
  Report Type: 
  Country: None (occurrence: None)
  Receive Date: 20060301
  Receipt Date: 20051128
  Transmission Date: 20060701
  Serious: No
  Sender: FDA-Public Use
  Company Number: S05-USA-05065-01

PATIENT
  Age: 87 Year
  Sex: Female

DRUGS (19)
  1. NAMENDA [Suspect]
     Indication: MEMORY IMPAIRMENT
     Dosage: 10 MG BID PO
     Route: 048
     Dates: start: 20050922
  2. NAMENDA [Suspect]
     Indication: MEMORY IMPAIRMENT
     Dosage: 5 MG QD PO
     Route: 048
     Dates: start: 20050901, end: 20050907
  3. NAMENDA [Suspect]
     Indication: MEMORY IMPAIRMENT
     Dosage: 5 MG BID PO
     Route: 048
     Dates: start: 20050908, end: 20050914
  4. NAMENDA [Suspect]
     Indication: MEMORY IMPAIRMENT
     Dosage: 15 MG QD PO
     Route: 048
     Dates: start: 20050915, end: 20050921
  5. PROTONIX [Concomitant]
  6. DARVOCET [Concomitant]
  7. LEVOXYL [Concomitant]
  8. ACTONEL (RISEDERONATE SODIUM) [Concomitant]
  9. PROVENTIL [Concomitant]
  10. ALLEGRA [Concomitant]
  11. ALLOPURINOL [Concomitant]
  12. LORAZEPAM [Concomitant]
  13. ATENOLOL [Concomitant]
  14. CALCIUM GLUCONATE [Concomitant]
  15. GLUCOSAMINE (GLUCOSAMINE) [Concomitant]
  16. MULTI-VITAMIN [Concomitant]
  17. VITAMIN B-12 [Concomitant]
  18. VITAMIN C (VITAMIN C) [Concomitant]
  19. FERROUS SULFATE TAB [Concomitant]

REACTIONS (1)
  - HALLUCINATION, VISUAL [None]
